FAERS Safety Report 4804334-8 (Version None)
Quarter: 2005Q4

REPORT INFORMATION
  Report Type: 
  Country: None (occurrence: None)
  Receive Date: 20051020
  Receipt Date: 20051012
  Transmission Date: 20060501
  Serious: Yes (Other)
  Sender: FDA-Public Use
  Company Number: US-BRISTOL-MYERS SQUIBB COMPANY-13149257

PATIENT
  Age: 73 Year
  Sex: Female
  Weight: 46 kg

DRUGS (1)
  1. TEQUIN INJ 10MG/ML [Suspect]
     Dosage: DOSE: 400 MG/40 ML
     Route: 031
     Dates: start: 20051005

REACTIONS (3)
  - EYE INFLAMMATION [None]
  - EYE PAIN [None]
  - VISUAL ACUITY REDUCED [None]
